FAERS Safety Report 13632063 (Version 1)
Quarter: 2017Q2

REPORT INFORMATION
  Report Type: Report from Study
  Country: US (occurrence: US)
  Receive Date: 20170608
  Receipt Date: 20170608
  Transmission Date: 20170830
  Serious: Yes (Other)
  Sender: FDA-Public Use
  Company Number: US-GILEAD-2017-0276628

PATIENT
  Age: 37 Year
  Sex: Male

DRUGS (1)
  1. SOFOSBUVIR W/VELPATASVIR [Suspect]
     Active Substance: SOFOSBUVIR\VELPATASVIR
     Indication: HEPATITIS C
     Dosage: 1 DF, UNK
     Route: 048

REACTIONS (5)
  - Aggression [Unknown]
  - Enuresis [Unknown]
  - Suicidal ideation [Unknown]
  - Apathy [Not Recovered/Not Resolved]
  - Inappropriate schedule of drug administration [Unknown]
